FAERS Safety Report 7054387-4 (Version None)
Quarter: 2010Q4

REPORT INFORMATION
  Report Type: 
  Country: None (occurrence: None)
  Receive Date: 20101015
  Receipt Date: 20100929
  Transmission Date: 20110411
  Serious: Yes (Death)
  Sender: FDA-Public Use
  Company Number: 2010004231

PATIENT
  Age: 65 Year

DRUGS (6)
  1. ERLOTINIB HYDROCHLORIDE [Suspect]
     Indication: NON-SMALL CELL LUNG CANCER
     Dosage: (150 MG, QD), ORAL
     Route: 048
     Dates: start: 20100913, end: 20100917
  2. PRIMPERAN TAB [Concomitant]
  3. OMEPRAZOLE [Concomitant]
  4. NOCID [Concomitant]
  5. MOTENS (LACIDIPINE) [Concomitant]
  6. MEGESTROL ACETATE [Concomitant]

REACTIONS (3)
  - HAEMOPTYSIS [None]
  - MALIGNANT NEOPLASM PROGRESSION [None]
  - NON-SMALL CELL LUNG CANCER [None]
